FAERS Safety Report 9254226 (Version 1)
Quarter: 2013Q2

REPORT INFORMATION
  Report Type: Spontaneous
  Country: US (occurrence: None)
  Receive Date: 20130416
  Receipt Date: 20130416
  Transmission Date: 20140414
  Serious: Yes (Other)
  Sender: FDA-Public Use
  Company Number: A13-037

PATIENT
  Age: 70 Year
  Sex: Male
  Weight: 76.6 kg

DRUGS (5)
  1. POLLENS - WEEDS AND GARDEN PLANTS, SAGEBRUSH, MUGWORT ARTEMISIA VULGARIS [Suspect]
     Dosage: 0.05CC; ONCE, 057
     Dates: start: 20130326
  2. MOLD MIX [Suspect]
     Dosage: 0.02CC; ONCE; 057
     Dates: start: 20130326
  3. ALLUPRINOL [Concomitant]
  4. ALLEGRA [Concomitant]
  5. FLONASE [Concomitant]

REACTIONS (8)
  - Feeling abnormal [None]
  - Anxiety [None]
  - Pruritus generalised [None]
  - Confusional state [None]
  - Cough [None]
  - Ocular hyperaemia [None]
  - Lacrimation increased [None]
  - Speech disorder [None]
